FAERS Safety Report 9461799 (Version 1)
Quarter: 2013Q3

REPORT INFORMATION
  Report Type: Spontaneous
  Country: US (occurrence: US)
  Receive Date: 20130816
  Receipt Date: 20130816
  Transmission Date: 20140515
  Serious: No
  Sender: FDA-Public Use
  Company Number: US-BAYER-2013-098999

PATIENT
  Age: 64 Year
  Sex: Female
  Weight: 76 kg

DRUGS (5)
  1. ALEVE TABLET [Suspect]
     Indication: HEADACHE
     Dosage: 2 DF, BID
     Route: 048
     Dates: start: 2008
  2. FOLIC ACID [Concomitant]
  3. CYMBALTA [Concomitant]
  4. METOPROLOL [Concomitant]
  5. CENTRUM [Concomitant]

REACTIONS (2)
  - Extra dose administered [None]
  - Incorrect drug administration duration [None]
